FAERS Safety Report 26085118 (Version 1)
Quarter: 2025Q4

REPORT INFORMATION
  Report Type: Spontaneous
  Country: CA (occurrence: CA)
  Receive Date: 20251125
  Receipt Date: 20251125
  Transmission Date: 20260117
  Serious: Yes (Other)
  Sender: ORGANON
  Company Number: CA-ORGANON-O2510CAN001989

PATIENT
  Age: 63 Year
  Sex: Female

DRUGS (2)
  1. ZENHALE [Suspect]
     Active Substance: FORMOTEROL FUMARATE\MOMETASONE FUROATE
     Dosage: 2 INHALATIONS, TWICE DAILY
     Dates: start: 202506
  2. ZENHALE [Suspect]
     Active Substance: FORMOTEROL FUMARATE\MOMETASONE FUROATE
     Dosage: 1 INHALATION, ONCE DAILY
     Dates: start: 2025, end: 2025

REACTIONS (8)
  - Laryngeal oedema [Not Recovered/Not Resolved]
  - Heart rate increased [Recovered/Resolved]
  - Oropharyngeal discomfort [Not Recovered/Not Resolved]
  - Palpitations [Recovered/Resolved]
  - Dyspnoea [Not Recovered/Not Resolved]
  - Larynx irritation [Not Recovered/Not Resolved]
  - Treatment noncompliance [Unknown]
  - Intentional underdose [Unknown]

NARRATIVE: CASE EVENT DATE: 20250101
